FAERS Safety Report 9524747 (Version 1)
Quarter: 2013Q1

REPORT INFORMATION
  Report Type: Spontaneous
  Country: US (occurrence: None)
  Receive Date: 20130305
  Receipt Date: 20130305
  Transmission Date: 20140127
  Serious: Yes (Other)
  Sender: FDA-Public Use
  Company Number: 163-21880-12021922

PATIENT
  Sex: Female

DRUGS (10)
  1. REVLIMID (LENALIDOMIDE) (25 MILLIGRAM, CAPSULES) [Suspect]
     Indication: PLASMA CELL MYELOMA
     Route: 048
     Dates: start: 20120203
  2. TYLENOL (PARACETAMOL) [Concomitant]
  3. DEXAMETHASONE [Concomitant]
  4. VELCADE [Concomitant]
  5. PRILOSEC [Concomitant]
  6. ASPIRIN (ACETYLSALICYLIC ACID) [Concomitant]
  7. MILK THISTLE (SILYBUM MARIANUM) [Concomitant]
  8. NIACIN (NICOTINIC ACID) [Concomitant]
  9. SELENIUM [Concomitant]
  10. VITAMIN E (TOCOPHEROL) [Concomitant]

REACTIONS (2)
  - Haemoglobin decreased [None]
  - Dizziness [None]
